FAERS Safety Report 18413349 (Version 1)
Quarter: 2020Q4

REPORT INFORMATION
  Report Type: Spontaneous
  Country: US (occurrence: US)
  Receive Date: 20201022
  Receipt Date: 20201022
  Transmission Date: 20210114
  Serious: No
  Sender: FDA-Public Use
  Company Number: US-SA-2020SA291503

PATIENT

DRUGS (1)
  1. DUPIXENT [Suspect]
     Active Substance: DUPILUMAB
     Indication: DERMATITIS ATOPIC

REACTIONS (5)
  - Conjunctivitis [Unknown]
  - Keratitis [Not Recovered/Not Resolved]
  - Periorbital disorder [Unknown]
  - Condition aggravated [Unknown]
  - Off label use [Unknown]
